FAERS Safety Report 6179047-3 (Version None)
Quarter: 2009Q2

REPORT INFORMATION
  Report Type: 
  Country: None (occurrence: None)
  Receive Date: 20090505
  Receipt Date: 20090421
  Transmission Date: 20091009
  Serious: Yes (Hospitalization, Other)
  Sender: FDA-Public Use
  Company Number: PHHY2009JP14470

PATIENT
  Age: 38 Year
  Sex: Female

DRUGS (4)
  1. METOPROLOL TARTRATE [Suspect]
  2. CALCIUM CHANNEL BLOCKERS [Concomitant]
  3. THIAMAZOLE [Concomitant]
     Dosage: 5MG/DAY
  4. BETAMETHASONE [Concomitant]

REACTIONS (9)
  - ADRENAL NEOPLASM [None]
  - BLOOD PRESSURE INCREASED [None]
  - HAEMORRHAGE [None]
  - HEPATIC ENZYME INCREASED [None]
  - NUCLEAR MAGNETIC RESONANCE IMAGING ABNORMAL [None]
  - PHAEOCHROMOCYTOMA MALIGNANT [None]
  - PYREXIA [None]
  - TACHYCARDIA [None]
  - TUMOUR EXCISION [None]
